FAERS Safety Report 10828636 (Version 2)
Quarter: 2015Q1

REPORT INFORMATION
  Report Type: Spontaneous
  Country: JP (occurrence: JP)
  Receive Date: 20150219
  Receipt Date: 20150319
  Transmission Date: 20150721
  Serious: Yes (Hospitalization)
  Sender: FDA-Public Use
  Company Number: JP-009507513-1502JPN006741

PATIENT
  Age: 90 Year
  Sex: Male
  Weight: 55 kg

DRUGS (2)
  1. MENESIT TABLETS - 100 [Suspect]
     Active Substance: CARBIDOPA\LEVODOPA
     Indication: PARKINSON^S DISEASE
     Dosage: 550 MG, QD (DIVIDED DOSE FREQUENCY UNKNOWN)
     Route: 048
     Dates: end: 20150209
  2. MENESIT TABLETS - 100 [Suspect]
     Active Substance: CARBIDOPA\LEVODOPA
     Dosage: DAILY DOSAGE UNKNOWN
     Route: 048
     Dates: start: 20150212

REACTIONS (1)
  - Pneumonia aspiration [Recovered/Resolved]

NARRATIVE: CASE EVENT DATE: 20150209
